FAERS Safety Report 20786218 (Version 1)
Quarter: 2022Q2

REPORT INFORMATION
  Report Type: Spontaneous
  Country: US (occurrence: None)
  Receive Date: 20220504
  Receipt Date: 20220504
  Transmission Date: 20220721
  Serious: No
  Sender: FDA-Public Use
  Company Number: US-ROCHE-2979100

PATIENT
  Sex: Female
  Weight: 113.50 kg

DRUGS (1)
  1. OCREVUS [Suspect]
     Active Substance: OCRELIZUMAB
     Indication: Relapsing multiple sclerosis
     Dosage: FIRST 300 MG INFUSION
     Route: 042
     Dates: start: 2021

REACTIONS (3)
  - Pain [Unknown]
  - Thermal burn [Unknown]
  - Headache [Unknown]

NARRATIVE: CASE EVENT DATE: 20210101
